FAERS Safety Report 8926023 (Version 1)
Quarter: 2012Q4

REPORT INFORMATION
  Report Type: 
  Country: IT (occurrence: IT)
  Receive Date: 20121126
  Receipt Date: 20121126
  Transmission Date: 20130627
  Serious: Yes (Hospitalization)
  Sender: FDA-Public Use
  Company Number: IT-BAYER-2012-122189

PATIENT
  Age: 84 Year
  Sex: Female

DRUGS (3)
  1. CARDIOASPIRIN [Suspect]
     Indication: PROPHYLAXIS
     Dosage: 100 mg, QD
     Route: 048
     Dates: start: 20111201, end: 20120908
  2. EBIXA [Concomitant]
     Dosage: Daily dose 20 mg
  3. NEO-LOTAN PLUS [Concomitant]
     Dosage: Daily dose 62.5 mg

REACTIONS (3)
  - Subdural haemorrhage [Recovering/Resolving]
  - Hemiparesis [Recovering/Resolving]
  - Asthenia [Recovering/Resolving]
